APPROVED DRUG PRODUCT: LIDOCAINE HYDROCHLORIDE AND EPINEPHRINE
Active Ingredient: EPINEPHRINE; LIDOCAINE HYDROCHLORIDE
Strength: 0.01MG/ML;1%
Dosage Form/Route: INJECTABLE;INJECTION
Application: A089644 | Product #001 | TE Code: AP
Applicant: HOSPIRA INC
Approved: Jun 21, 1988 | RLD: No | RS: No | Type: RX